FAERS Safety Report 19724932 (Version 2)
Quarter: 2021Q3

REPORT INFORMATION
  Report Type: Spontaneous
  Country: US (occurrence: US)
  Receive Date: 20210819
  Receipt Date: 20210831
  Transmission Date: 20211014
  Serious: Yes (Other)
  Sender: FDA-Public Use
  Company Number: US-TEVA-2021-US-1942320

PATIENT
  Age: 9 Year
  Sex: Female
  Weight: 48.8 kg

DRUGS (4)
  1. RISPERIDONE. [Suspect]
     Active Substance: RISPERIDONE
     Indication: OPPOSITIONAL DEFIANT DISORDER
     Dosage: 2 MILLIGRAM DAILY; STABLE DOSE FOR 6 MONTHS
     Route: 065
  2. CITALOPRAM [Suspect]
     Active Substance: CITALOPRAM HYDROBROMIDE
     Indication: OPPOSITIONAL DEFIANT DISORDER
     Dosage: 10 MILLIGRAM DAILY;
     Route: 065
  3. RISPERIDONE. [Suspect]
     Active Substance: RISPERIDONE
     Indication: ATTENTION DEFICIT HYPERACTIVITY DISORDER
     Dosage: 3.5 MILLIGRAM DAILY;
     Route: 065
  4. CITALOPRAM [Suspect]
     Active Substance: CITALOPRAM HYDROBROMIDE
     Indication: ATTENTION DEFICIT HYPERACTIVITY DISORDER
     Dosage: 30 MILLIGRAM DAILY; CITALOPRAM HAD BEEN INCREASED FROM 10 TO 30 MG OVER A 2?WEEK PERIOD BEFORE ED RE
     Route: 065

REACTIONS (4)
  - Delusion [Recovered/Resolved]
  - Psychotic disorder [Recovered/Resolved]
  - Hyperprolactinaemia [Recovered/Resolved]
  - Agitation [Recovered/Resolved]
